FAERS Safety Report 12642029 (Version 2)
Quarter: 2017Q1

REPORT INFORMATION
  Report Type: Spontaneous
  Country: US (occurrence: US)
  Receive Date: 20160810
  Receipt Date: 20170223
  Transmission Date: 20170428
  Serious: Yes (Death, Hospitalization, Other)
  Sender: FDA-Public Use
  Company Number: US-PACIRA PHARMACEUTICALS, INC.-2016EXPUS00467

PATIENT
  Age: 64 Year
  Sex: Male
  Weight: 118 kg

DRUGS (6)
  1. EXPAREL [Suspect]
     Active Substance: BUPIVACAINE
     Indication: POSTOPERATIVE ANALGESIA
     Dosage: 20 ML, INJECTED INTO ABDOMEN, ONCE
     Dates: start: 20160517, end: 20160517
  2. GABAPENTIN. [Concomitant]
     Active Substance: GABAPENTIN
     Indication: SEIZURE
     Dosage: 400 MG, BID
  3. AFINITOR [Concomitant]
     Active Substance: EVEROLIMUS
     Indication: BRAIN NEOPLASM
     Dosage: 5 MG, UNK, QAM MWF
  4. LYRICA [Concomitant]
     Active Substance: PREGABALIN
     Indication: NEUROPATHY PERIPHERAL
     Dosage: 150 MG, BID
  5. GILOTRIF [Concomitant]
     Active Substance: AFATINIB
     Indication: BRAIN NEOPLASM
     Dosage: 1 MG, QAM
  6. MEKINIST [Concomitant]
     Active Substance: TRAMETINIB DIMETHYL SULFOXIDE
     Indication: BRAIN NEOPLASM
     Dosage: 1 MG, QAM

REACTIONS (8)
  - Muscle injury [Unknown]
  - Peripheral embolism [Not Recovered/Not Resolved]
  - Erythema [Not Recovered/Not Resolved]
  - Abasia [Not Recovered/Not Resolved]
  - Confusional state [Not Recovered/Not Resolved]
  - Death [Fatal]
  - Sexual dysfunction [Unknown]
  - Incontinence [Not Recovered/Not Resolved]

NARRATIVE: CASE EVENT DATE: 20160517
